FAERS Safety Report 14757600 (Version 1)
Quarter: 2018Q2

REPORT INFORMATION
  Report Type: Spontaneous
  Country: US (occurrence: US)
  Receive Date: 20180413
  Receipt Date: 20180413
  Transmission Date: 20180711
  Serious: No
  Sender: FDA-Public Use
  Company Number: US-ALKERMES INC.-ALK-2018-001199

PATIENT
  Age: 26 Year
  Sex: Female
  Weight: 72.56 kg

DRUGS (3)
  1. VIVITROL [Suspect]
     Active Substance: NALTREXONE
     Indication: GENERALISED ANXIETY DISORDER
  2. VISTARIL [Concomitant]
     Active Substance: HYDROXYZINE PAMOATE
     Indication: INSOMNIA
     Dosage: 25 MG, HS
  3. VIVITROL [Suspect]
     Active Substance: NALTREXONE
     Indication: ALCOHOLISM
     Dosage: 380 MG, QMO
     Route: 030
     Dates: start: 201711, end: 20180308

REACTIONS (7)
  - Injection site cellulitis [Unknown]
  - Off label use [Recovered/Resolved]
  - Injection site reaction [Unknown]
  - Injection site pain [Unknown]
  - Injection site bruising [Unknown]
  - Injection site induration [Unknown]
  - Injection site mass [Unknown]

NARRATIVE: CASE EVENT DATE: 201711
